FAERS Safety Report 9798881 (Version 3)
Quarter: 2015Q3

REPORT INFORMATION
  Report Type: Spontaneous
  Country: US (occurrence: US)
  Receive Date: 20140106
  Receipt Date: 20150806
  Transmission Date: 20151125
  Serious: No
  Sender: FDA-Public Use
  Company Number: US-GILEAD-2010-0033460

PATIENT
  Age: 64 Year
  Sex: Female

DRUGS (10)
  1. ENALAPRIL [Concomitant]
     Active Substance: ENALAPRIL
  2. METOPROLOL [Concomitant]
     Active Substance: METOPROLOL
  3. TRAZODONE [Concomitant]
     Active Substance: TRAZODONE HYDROCHLORIDE
  4. LETAIRIS [Suspect]
     Active Substance: AMBRISENTAN
     Indication: PULMONARY ARTERIAL HYPERTENSION
     Route: 048
     Dates: start: 20091009, end: 20100110
  5. SIMVASTATIN. [Concomitant]
     Active Substance: SIMVASTATIN
  6. WARFARIN [Concomitant]
     Active Substance: WARFARIN
  7. REVATIO [Concomitant]
     Active Substance: SILDENAFIL CITRATE
  8. FUROSEMIDE. [Concomitant]
     Active Substance: FUROSEMIDE
  9. PEPCID [Concomitant]
     Active Substance: FAMOTIDINE
  10. POTASSIUM [Concomitant]
     Active Substance: POTASSIUM

REACTIONS (3)
  - Oxygen saturation decreased [Unknown]
  - Blood pressure decreased [Recovered/Resolved]
  - Dyspnoea [Unknown]

NARRATIVE: CASE EVENT DATE: 20091007
